FAERS Safety Report 6957450-9 (Version None)
Quarter: 2010Q3

REPORT INFORMATION
  Report Type: 
  Country: None (occurrence: None)
  Receive Date: 20100826
  Receipt Date: 20100817
  Transmission Date: 20110219
  Serious: Yes (Other)
  Sender: FDA-Public Use
  Company Number: 2010US003376

PATIENT
  Age: 67 Year
  Sex: Male

DRUGS (9)
  1. PROGRAF [Suspect]
     Indication: HEART TRANSPLANT
     Dosage: 4 MG, BID, ORAL
     Route: 048
     Dates: start: 20000202
  2. NOVOLOG [Concomitant]
  3. LANTUS [Concomitant]
  4. RESTORIL [Concomitant]
  5. VYTORIN [Concomitant]
  6. LEXAPRO [Concomitant]
  7. NEXIUM IV [Concomitant]
  8. ALTACE [Concomitant]
  9. ADALAT [Concomitant]

REACTIONS (3)
  - DIABETES MELLITUS [None]
  - HAEMODIALYSIS [None]
  - RENAL FAILURE CHRONIC [None]
